FAERS Safety Report 18960158 (Version 1)
Quarter: 2021Q1

REPORT INFORMATION
  Report Type: Spontaneous
  Country: GB (occurrence: GB)
  Receive Date: 20210302
  Receipt Date: 20210302
  Transmission Date: 20210420
  Serious: Yes (Hospitalization)
  Sender: FDA-Public Use
  Company Number: GB-MYLANLABS-2021M1012025

PATIENT
  Sex: Female

DRUGS (3)
  1. BRONCHITOL [Concomitant]
     Active Substance: MANNITOL
     Dosage: UNK
  2. CEFTAZIDIME. [Concomitant]
     Active Substance: CEFTAZIDIME
     Dosage: UNK
  3. TOBI PODHALER [Suspect]
     Active Substance: TOBRAMYCIN
     Indication: CYSTIC FIBROSIS
     Dosage: 112 MILLIGRAM, BID (ALT MONTHS)
     Dates: start: 20191024

REACTIONS (2)
  - Hospitalisation [Unknown]
  - Product dose omission issue [Unknown]
